FAERS Safety Report 20494284 (Version 1)
Quarter: 2022Q1

REPORT INFORMATION
  Report Type: Spontaneous
  Country: US (occurrence: US)
  Receive Date: 20220221
  Receipt Date: 20220221
  Transmission Date: 20220424
  Serious: Yes (Death)
  Sender: FDA-Public Use
  Company Number: US-CELGENE-USA-20220204742

PATIENT
  Age: 64 Year
  Sex: Male

DRUGS (1)
  1. IDHIFA [Suspect]
     Active Substance: ENASIDENIB MESYLATE
     Indication: Acute myeloid leukaemia recurrent
     Dosage: 100 MILLIGRAM
     Route: 048
     Dates: end: 20220213

REACTIONS (1)
  - Death [Fatal]

NARRATIVE: CASE EVENT DATE: 20220213
